FAERS Safety Report 7988667-2 (Version None)
Quarter: 2011Q4

REPORT INFORMATION
  Report Type: 
  Country: None (occurrence: None)
  Receive Date: 20111218
  Receipt Date: 20111205
  Transmission Date: 20120403
  Serious: Yes (Hospitalization)
  Sender: FDA-Public Use
  Company Number: US-ELI_LILLY_AND_COMPANY-US201112001849

PATIENT
  Age: 74 Year
  Sex: Female

DRUGS (25)
  1. IMURAN [Concomitant]
  2. NEXIUM [Concomitant]
  3. DOCUSATE SODIUM [Concomitant]
  4. FERROUS SULFATE TAB [Concomitant]
  5. HYZAAR [Concomitant]
  6. NORVASC [Concomitant]
  7. FISH OIL [Concomitant]
  8. MELATONIN [Concomitant]
  9. CLONIDINE [Concomitant]
  10. DETROL LA [Concomitant]
  11. METFORMIN HCL [Concomitant]
  12. CYMBALTA [Suspect]
     Indication: FIBROMYALGIA
     Dosage: 60 MG, QD
     Dates: start: 20080101
  13. DOMPERIDONE [Concomitant]
  14. CALCIUM [Concomitant]
  15. CRESTOR [Concomitant]
  16. LUNESTA [Concomitant]
  17. MIRAPEX [Concomitant]
  18. ZANTAC [Concomitant]
  19. ZANAFLEX [Concomitant]
  20. COQ10 [Concomitant]
  21. LABETALOL HCL [Concomitant]
  22. MESTINON [Concomitant]
  23. NORCO [Concomitant]
  24. CENTRUM SILVER [Concomitant]
  25. BONIVA [Concomitant]
     Dosage: UNK, EVERY 3 MONTHS

REACTIONS (9)
  - PAIN [None]
  - DRY MOUTH [None]
  - HYPERHIDROSIS [None]
  - VISION BLURRED [None]
  - FATIGUE [None]
  - MYASTHENIA GRAVIS [None]
  - DIZZINESS [None]
  - INTERVERTEBRAL DISC PROTRUSION [None]
  - SOMNOLENCE [None]
